FAERS Safety Report 4940080-8 (Version None)
Quarter: 2006Q1

REPORT INFORMATION
  Report Type: 
  Country: None (occurrence: None)
  Receive Date: 20060310
  Receipt Date: 20050606
  Transmission Date: 20060701
  Serious: Yes (Other)
  Sender: FDA-Public Use
  Company Number: 2005UW08732

PATIENT
  Age: 418 Month
  Sex: Female

DRUGS (5)
  1. SEROQUEL [Suspect]
     Indication: BIPOLAR DISORDER
     Route: 048
     Dates: start: 20050222
  2. SEROQUEL [Suspect]
     Route: 048
     Dates: start: 20040501
  3. LEXAPRO [Concomitant]
     Indication: DEPRESSION
     Dates: start: 20050419
  4. WELLBUTRIN [Concomitant]
  5. TEGRETOL [Concomitant]

REACTIONS (4)
  - DRUG EXPOSURE BEFORE PREGNANCY [None]
  - DRUG EXPOSURE DURING PREGNANCY [None]
  - GESTATIONAL DIABETES [None]
  - NORMAL NEWBORN [None]
